FAERS Safety Report 15949961 (Version 1)
Quarter: 2019Q1

REPORT INFORMATION
  Report Type: Spontaneous
  Country: UA (occurrence: UA)
  Receive Date: 20190212
  Receipt Date: 20190212
  Transmission Date: 20190417
  Serious: Yes (Other)
  Sender: FDA-Public Use
  Company Number: UA-TEVA-2019-UA-1011634

PATIENT
  Age: 14 Year
  Sex: Male

DRUGS (1)
  1. SUMAMED [Suspect]
     Active Substance: AZITHROMYCIN ANHYDROUS
     Indication: PNEUMONIA
     Dosage: 10 MG/KG DAILY;
     Route: 065

REACTIONS (1)
  - Angina pectoris [Recovered/Resolved]
